FAERS Safety Report 9494239 (Version 1)
Quarter: 2013Q3

REPORT INFORMATION
  Report Type: Spontaneous
  Country: US (occurrence: None)
  Receive Date: 20130830
  Receipt Date: 20130830
  Transmission Date: 20140515
  Serious: Yes (Other)
  Sender: FDA-Public Use
  Company Number: ADR-2013-01499

PATIENT
  Age: 50 Year
  Sex: Female

DRUGS (2)
  1. BACLOFEN [Suspect]
     Dosage: 2.198.2 MCG/DAY
  2. HYDROMORPHONE [Suspect]
     Dosage: 5.4955 MG/DAY

REACTIONS (6)
  - Muscle spasticity [None]
  - Musculoskeletal stiffness [None]
  - Condition aggravated [None]
  - Intervertebral disc space narrowing [None]
  - Cerebrospinal fluid leakage [None]
  - Device issue [None]
